FAERS Safety Report 5181461-X (Version None)
Quarter: 2006Q4

REPORT INFORMATION
  Report Type: 
  Country: None (occurrence: None)
  Receive Date: 20061220
  Receipt Date: 20060118
  Transmission Date: 20070319
  Serious: No
  Sender: FDA-Public Use
  Company Number: US-GLAXOSMITHKLINE-A0589800A

PATIENT
  Age: 32 Year
  Sex: Female

DRUGS (2)
  1. COMMIT [Suspect]
  2. NICODERM CQ [Suspect]

REACTIONS (5)
  - APPLICATION SITE PRURITUS [None]
  - APPLICATION SITE RASH [None]
  - ORAL MUCOSAL EXFOLIATION [None]
  - RASH GENERALISED [None]
  - STOMATITIS [None]
